FAERS Safety Report 5599873-9 (Version None)
Quarter: 2008Q1

REPORT INFORMATION
  Report Type: 
  Country: None (occurrence: None)
  Receive Date: 20080117
  Receipt Date: 20080117
  Transmission Date: 20080703
  Serious: Yes (Hospitalization)
  Sender: FDA-Public Use
  Company Number: None

PATIENT
  Age: 89 Year
  Sex: Female
  Weight: 100.7 kg

DRUGS (7)
  1. LISINOPRIL [Suspect]
     Indication: HYPERTENSION
     Dosage: 40MG DAILY PO
     Route: 048
     Dates: start: 20071024, end: 20071206
  2. OMEPRAZOLE [Suspect]
     Dosage: 20MG BID PO
     Route: 048
     Dates: start: 20071105, end: 20071206
  3. PANTOPRAZOLE SODIUM [Suspect]
     Dosage: 40MG DAILY PO
     Route: 048
     Dates: start: 20071207, end: 20071213
  4. FEMARA [Concomitant]
  5. WARFARIN SODIUM [Concomitant]
  6. MEDROL [Concomitant]
  7. METOPROLOL TARTRATE [Concomitant]

REACTIONS (5)
  - BLOOD CREATININE INCREASED [None]
  - EOSINOPHILS URINE PRESENT [None]
  - PROTEUS INFECTION [None]
  - RASH [None]
  - URINARY TRACT INFECTION [None]
